FAERS Safety Report 10313560 (Version 4)
Quarter: 2014Q3

REPORT INFORMATION
  Report Type: Spontaneous
  Country: US (occurrence: None)
  Receive Date: 20140716
  Receipt Date: 20140908
  Transmission Date: 20150326
  Serious: Yes (Hospitalization, Other)
  Sender: FDA-Public Use
  Company Number: UNT-2014-003307

PATIENT
  Age: 25 Year
  Sex: Female
  Weight: 83.4 kg

DRUGS (5)
  1. ADCIRCA [Concomitant]
     Active Substance: TADALAFIL
  2. TRUVADA (EMTRICITABINE, TENOVIR DISOPROXIL FUMARATE) [Concomitant]
  3. EDURANT (RILPRIVINE HYDROCHLORIDE) [Concomitant]
  4. TYVASO [Suspect]
     Active Substance: TREPROSTINIL
     Indication: COR PULMONALE CHRONIC
     Dates: start: 20140313
  5. LETAIRIS [Concomitant]
     Active Substance: AMBRISENTAN

REACTIONS (9)
  - Pregnancy [None]
  - Dyspnoea exertional [None]
  - Atrial fibrillation [None]
  - Female sterilisation [None]
  - Exposure during pregnancy [None]
  - Premature delivery [None]
  - Dizziness [None]
  - Dependence [None]
  - Hypotension [None]

NARRATIVE: CASE EVENT DATE: 20140627
